FAERS Safety Report 22092584 (Version 1)
Quarter: 2023Q1

REPORT INFORMATION
  Report Type: Spontaneous
  Country: US (occurrence: US)
  Receive Date: 20230314
  Receipt Date: 20230314
  Transmission Date: 20230418
  Serious: Yes (Disabling, Other)
  Sender: FDA-Public Use
  Company Number: US-BAYER-2023A029342

PATIENT
  Age: 46 Year
  Sex: Male

DRUGS (1)
  1. ASPIRIN [Suspect]
     Active Substance: ASPIRIN

REACTIONS (6)
  - Vitreous haemorrhage [None]
  - Tractional retinal detachment [None]
  - Eye haemorrhage [None]
  - Procedural haemorrhage [None]
  - Blindness [None]
  - Contraindicated product administered [None]
